FAERS Safety Report 4785490-7 (Version None)
Quarter: 2005Q3

REPORT INFORMATION
  Report Type: 
  Country: None (occurrence: None)
  Receive Date: 20050929
  Receipt Date: 20050920
  Transmission Date: 20060218
  Serious: Yes (Other)
  Sender: FDA-Public Use
  Company Number: 27222

PATIENT
  Age: 62 Year
  Sex: Female

DRUGS (4)
  1. ALDARA [Suspect]
     Indication: ACTINIC KERATOSIS
     Dosage: (3 IN 1 WEEK(S)), TOPICAL
     Route: 061
     Dates: start: 20050727, end: 20050806
  2. ARTHROTEC [Concomitant]
  3. TYLENOL (CAPLET) [Concomitant]
  4. TEGRETOL [Concomitant]

REACTIONS (6)
  - APPLICATION SITE ERYTHEMA [None]
  - APPLICATION SITE REACTION [None]
  - BACTERIAL INFECTION [None]
  - FUNGAL INFECTION [None]
  - LYMPHOID TISSUE HYPERPLASIA [None]
  - SKIN ATROPHY [None]
